FAERS Safety Report 11169372 (Version 2)
Quarter: 2015Q3

REPORT INFORMATION
  Report Type: Spontaneous
  Country: US (occurrence: US)
  Receive Date: 20150605
  Receipt Date: 20150728
  Transmission Date: 20151125
  Serious: Yes (Hospitalization, Other)
  Sender: FDA-Public Use
  Company Number: US-GLAXOSMITHKLINE-US2015GSK077158

PATIENT
  Age: 67 Year
  Sex: Female

DRUGS (1)
  1. COREG [Suspect]
     Active Substance: CARVEDILOL
     Indication: HEART VALVE INCOMPETENCE
     Dosage: 12.5 MG, U
     Route: 048
     Dates: start: 2011

REACTIONS (4)
  - Hospitalisation [Recovered/Resolved]
  - Gastrointestinal surgery [Unknown]
  - Intestinal obstruction [Unknown]
  - Crohn^s disease [Unknown]

NARRATIVE: CASE EVENT DATE: 201407
